FAERS Safety Report 14713925 (Version 1)
Quarter: 2018Q2

REPORT INFORMATION
  Report Type: Spontaneous
  Country: US (occurrence: US)
  Receive Date: 20180404
  Receipt Date: 20180404
  Transmission Date: 20180711
  Serious: Yes (Death, Hospitalization)
  Sender: FDA-Public Use
  Company Number: US-ALKERMES INC.-ALK-2018-001915

PATIENT
  Sex: Male

DRUGS (1)
  1. VIVITROL [Suspect]
     Active Substance: NALTREXONE
     Indication: DRUG DEPENDENCE
     Dosage: 380 MG, QMO
     Route: 030

REACTIONS (5)
  - Movement disorder [Unknown]
  - Drug dependence [Unknown]
  - Brain injury [Unknown]
  - Overdose [Fatal]
  - Therapeutic response shortened [Unknown]

NARRATIVE: CASE EVENT DATE: 201110
